FAERS Safety Report 9286304 (Version 3)
Quarter: 2013Q3

REPORT INFORMATION
  Report Type: Spontaneous
  Country: US (occurrence: US)
  Receive Date: 20130513
  Receipt Date: 20130909
  Transmission Date: 20140515
  Serious: Yes (Hospitalization, Other)
  Sender: FDA-Public Use
  Company Number: US-PFIZER INC-2013145008

PATIENT
  Age: 68 Year
  Sex: Female
  Weight: 110 kg

DRUGS (6)
  1. CELEBREX [Suspect]
     Indication: ARTHRITIS
     Dosage: 200MG DAILY
     Dates: start: 1999, end: 201305
  2. CELEBREX [Suspect]
     Indication: RHEUMATOID ARTHRITIS
  3. CELEBREX [Suspect]
     Indication: ADENOMATOUS POLYPOSIS COLI
  4. ENBREL [Suspect]
     Dosage: UNK
  5. METHOTREXATE SODIUM [Suspect]
     Indication: RHEUMATOID ARTHRITIS
     Dosage: 2 MG, QD
  6. VITAMINS NOS [Concomitant]
     Indication: PAIN
     Dosage: UNK

REACTIONS (4)
  - Back disorder [Unknown]
  - Road traffic accident [Unknown]
  - Drug ineffective [Unknown]
  - Nodule [Unknown]
